FAERS Safety Report 5557100-2 (Version None)
Quarter: 2007Q4

REPORT INFORMATION
  Report Type: 
  Country: None (occurrence: None)
  Receive Date: 20071214
  Receipt Date: 20071211
  Transmission Date: 20080405
  Serious: Yes (Hospitalization)
  Sender: FDA-Public Use
  Company Number: US-AVENTIS-200713423EU

PATIENT
  Age: 83 Year
  Sex: Female

DRUGS (20)
  1. ENOXAPARIN SODIUM [Suspect]
     Route: 058
     Dates: start: 20070612, end: 20070621
  2. MOBIC [Concomitant]
     Indication: ARTHRITIS
     Route: 048
     Dates: start: 20050101, end: 20070604
  3. ZOCOR [Concomitant]
     Route: 048
     Dates: start: 19920101, end: 20070610
  4. ZOCOR [Concomitant]
     Route: 048
     Dates: start: 20070612
  5. LOZIDE                             /00340102/ [Concomitant]
     Indication: HYPERTENSION
     Route: 048
     Dates: start: 20060101, end: 20070610
  6. SYNTHROID [Concomitant]
     Indication: HYPOTHYROIDISM
     Route: 048
     Dates: start: 19920101, end: 20070610
  7. SYNTHROID [Concomitant]
     Route: 048
     Dates: start: 20070612
  8. NEXIUM [Concomitant]
     Route: 048
     Dates: start: 20060101, end: 20070610
  9. ALAVERT [Concomitant]
     Route: 048
     Dates: start: 20020101
  10. CALCIUM [Concomitant]
     Route: 048
     Dates: start: 20070604
  11. CALCIUM [Concomitant]
     Dates: start: 20070101, end: 20070610
  12. DARVOCET [Concomitant]
     Route: 048
  13. ZOFRAN [Concomitant]
     Dates: start: 20070611, end: 20070611
  14. PHENERGAN HCL [Concomitant]
     Dates: start: 20070611, end: 20070611
  15. PHENERGAN HCL [Concomitant]
     Dates: start: 20070611, end: 20070613
  16. PHENERGAN HCL [Concomitant]
     Dates: start: 20070611, end: 20070611
  17. PHENERGAN HCL [Concomitant]
     Dates: start: 20070611, end: 20070613
  18. PROTONIX [Concomitant]
     Dates: start: 20070612, end: 20070629
  19. ANCEF                              /00288502/ [Concomitant]
     Indication: INFECTION PROPHYLAXIS
     Dates: start: 20070611, end: 20070611
  20. ANCEF                              /00288502/ [Concomitant]
     Dates: start: 20070612, end: 20070612

REACTIONS (1)
  - PYREXIA [None]
